FAERS Safety Report 15329088 (Version 1)
Quarter: 2018Q3

REPORT INFORMATION
  Report Type: Spontaneous
  Country: US (occurrence: US)
  Receive Date: 20180823
  Receipt Date: 20180823
  Transmission Date: 20181010
  Serious: No
  Sender: FDA-Public Use
  Company Number: None

PATIENT
  Age: 60 Year
  Sex: Female

DRUGS (1)
  1. DOFETILIDE 0.5MG MAYNE PHARMA [Suspect]
     Active Substance: DOFETILIDE
     Indication: ATRIAL FIBRILLATION
     Route: 048
     Dates: start: 20171216

REACTIONS (4)
  - Muscle twitching [None]
  - Feeling abnormal [None]
  - Anxiety [None]
  - Amnesia [None]

NARRATIVE: CASE EVENT DATE: 20180801
